FAERS Safety Report 14711154 (Version 5)
Quarter: 2020Q1

REPORT INFORMATION
  Report Type: Report from Study
  Country: KR (occurrence: KR)
  Receive Date: 20180403
  Receipt Date: 20200225
  Transmission Date: 20200409
  Serious: Yes (Death, Life-Threatening, Hospitalization)
  Sender: FDA-Public Use
  Company Number: KR-AMGEN-KORCT2018032479

PATIENT
  Age: 76 Year
  Sex: Male
  Weight: 61.5 kg

DRUGS (28)
  1. DARATUMUMAB [Suspect]
     Active Substance: DARATUMUMAB
     Indication: PLASMA CELL MYELOMA
     Dosage: 992 MG, PER CHEMO REGIM
     Route: 042
     Dates: start: 20171206
  2. DEXAMETHASONE. [Concomitant]
     Active Substance: DEXAMETHASONE
     Dosage: 8-20 MILLIGRAM
     Dates: start: 20171206, end: 20180328
  3. NEURONTIN [Concomitant]
     Active Substance: GABAPENTIN
     Dosage: 300 MILLIGRAM
     Dates: start: 20170322, end: 20180330
  4. SULTAMICILLIN TOSYLATE [Concomitant]
     Active Substance: SULTAMICILLIN TOSYLATE
     Dosage: 375 MILLIGRAM
     Dates: start: 20180124, end: 20180130
  5. METHYLON [Concomitant]
     Active Substance: METHYLPREDNISOLONE
     Dosage: 20 MILLIGRAM
     Route: 048
     Dates: start: 20171208
  6. TERRAMYCIN [OXYTETRACYCLINE] [Concomitant]
     Dosage: 1 UNK
     Dates: start: 20171206, end: 20171214
  7. FENTORA [Concomitant]
     Active Substance: FENTANYL CITRATE
     Dosage: 100 MICROGRAM
     Dates: start: 20171220, end: 20180102
  8. UNASYN [SULTAMICILLIN] [Concomitant]
     Active Substance: SULTAMICILLIN
     Dosage: 375 MILLIGRAM
     Dates: start: 20180207, end: 20180219
  9. MEGACE F [Concomitant]
     Dosage: 5 MILLILITER
     Dates: start: 20180227, end: 20180327
  10. NORMAL SALINE [Concomitant]
     Active Substance: SODIUM CHLORIDE
     Dosage: 500 ML AND 500 MG
     Route: 042
     Dates: start: 20171214
  11. NEXIUM [Concomitant]
     Active Substance: ESOMEPRAZOLE MAGNESIUM
     Dosage: 20-40 MG
     Route: 048
     Dates: start: 20171206, end: 20180331
  12. PANORIN [Concomitant]
     Dosage: 90 MILLIGRAM
     Route: 042
     Dates: start: 20180103
  13. ACETAMINOPHEN. [Concomitant]
     Active Substance: ACETAMINOPHEN
     Dosage: 650 MILLIGRAM
     Route: 048
     Dates: start: 20171207
  14. DARATUMUMAB [Suspect]
     Active Substance: DARATUMUMAB
     Dosage: UNK UNK, PER CHEMO REGIM
     Route: 042
     Dates: start: 20180322
  15. ACLOVA [Concomitant]
     Dosage: 400 MILLIGRAM
     Dates: start: 20170302, end: 20180330
  16. SINGULAIR [Concomitant]
     Active Substance: MONTELUKAST SODIUM
     Dosage: 10 MILLIGRAM
     Route: 048
     Dates: start: 20171206
  17. BEAROBAN [Concomitant]
     Dosage: 1 UNK
     Dates: start: 20171213, end: 20171225
  18. CARFILZOMIB [Suspect]
     Active Substance: CARFILZOMIB
     Indication: PLASMA CELL MYELOMA
     Dosage: 90 MG, PER CHEMO REGIM
     Route: 042
     Dates: start: 20171206
  19. LASIX [Concomitant]
     Active Substance: FUROSEMIDE
     Dosage: 10-20MG
     Dates: start: 20171226, end: 20180307
  20. SODIUM BICARBONATE. [Concomitant]
     Active Substance: SODIUM BICARBONATE
     Dosage: 40-80 MEQ
     Dates: start: 20171206, end: 20180331
  21. TYLENOL ER [Concomitant]
     Active Substance: ACETAMINOPHEN
     Dosage: 650 MILLIGRAM
     Route: 048
     Dates: start: 20171206
  22. PENIRAMIN [Concomitant]
     Dosage: 4 MILLIGRAM
     Route: 042
     Dates: start: 20171206
  23. ZOLENIC [Concomitant]
     Dosage: 4 MILLIGRAM
     Route: 042
     Dates: start: 20171206
  24. CARFILZOMIB [Suspect]
     Active Substance: CARFILZOMIB
     Dosage: UNK UNK, PER CHEMO REGIM
     Route: 042
     Dates: start: 20180322
  25. TARGIN [Concomitant]
     Active Substance: NALOXONE HYDROCHLORIDE\OXYCODONE HYDROCHLORIDE
     Dosage: 20 MILLIGRAM
     Dates: start: 20170620, end: 20180330
  26. VARIDASE [Concomitant]
     Dosage: 1 UNK
     Dates: start: 20180124, end: 20180130
  27. CARFILZOMIB [Suspect]
     Active Substance: CARFILZOMIB
     Dosage: 90 MG, PER CHEMO REGIM
     Route: 042
     Dates: start: 20180329
  28. ERDOS [Concomitant]
     Active Substance: ERDOSTEINE
     Dosage: 300 MILLIGRAM
     Dates: start: 20180117, end: 20180219

REACTIONS (2)
  - Septic shock [Fatal]
  - Pneumocystis jirovecii pneumonia [Not Recovered/Not Resolved]

NARRATIVE: CASE EVENT DATE: 20180307
